FAERS Safety Report 21985842 (Version 1)
Quarter: 2023Q1

REPORT INFORMATION
  Report Type: Spontaneous
  Country: US (occurrence: US)
  Receive Date: 20230213
  Receipt Date: 20230213
  Transmission Date: 20230417
  Serious: No
  Sender: FDA-Public Use
  Company Number: US-SA-SAC20230209000561

PATIENT
  Sex: Male

DRUGS (8)
  1. DUPIXENT [Suspect]
     Active Substance: DUPILUMAB
     Indication: Pruritus
     Dosage: 300MG QOW
     Route: 058
     Dates: start: 20220628
  2. ATORVASTATIN [Concomitant]
     Active Substance: ATORVASTATIN
  3. METOPROLOL [Concomitant]
     Active Substance: METOPROLOL
  4. PROPAFENONE [Concomitant]
     Active Substance: PROPAFENONE
     Dosage: 20MG
  5. PANTOPRAZOLE [Concomitant]
     Active Substance: PANTOPRAZOLE
  6. TADALAFIL [Concomitant]
     Active Substance: TADALAFIL
  7. XARELTO [Concomitant]
     Active Substance: RIVAROXABAN
  8. NORTRIPTYLINE [Concomitant]
     Active Substance: NORTRIPTYLINE

REACTIONS (3)
  - Dermatitis atopic [Not Recovered/Not Resolved]
  - Therapeutic response shortened [Not Recovered/Not Resolved]
  - Product use in unapproved indication [Unknown]
